FAERS Safety Report 25260489 (Version 1)
Quarter: 2025Q2

REPORT INFORMATION
  Report Type: Report from Study
  Country: US (occurrence: US)
  Receive Date: 20250501
  Receipt Date: 20250501
  Transmission Date: 20250716
  Serious: Yes (Hospitalization)
  Sender: REGENERON
  Company Number: US-REGENERON PHARMACEUTICALS, INC.-2025-072402

PATIENT
  Sex: Female

DRUGS (1)
  1. EYLEA [Suspect]
     Active Substance: AFLIBERCEPT
     Indication: Diabetic retinopathy
     Dosage: 1 SYRINGE TO EACH EYE, EVERY FOUR WEEKS, STRENGTH:2MG/0.05ML, FORMULATION: PFS (GERRESHEIMER)
     Dates: start: 202410

REACTIONS (1)
  - Hospitalisation [Not Recovered/Not Resolved]
